FAERS Safety Report 4487653-7 (Version None)
Quarter: 2004Q4

REPORT INFORMATION
  Report Type: 
  Country: None (occurrence: None)
  Receive Date: 20041025
  Receipt Date: 20041021
  Transmission Date: 20050328
  Serious: Yes (Other)
  Sender: FDA-Public Use
  Company Number: THQ2004A00858

PATIENT
  Age: 30 Year
  Sex: Female

DRUGS (3)
  1. LUCRIN INJECTION (LEUPROLIDE ACETATE) (INJECTION) [Suspect]
     Indication: ANAEMIA
     Dosage: 3.75 MG (3.75 MG, 1 IN 1 M) INJECTION
     Dates: start: 20031120, end: 20040113
  2. LUCRIN INJECTION (LEUPROLIDE ACETATE) (INJECTION) [Suspect]
     Indication: HAEMORRHAGE
     Dosage: 3.75 MG (3.75 MG, 1 IN 1 M) INJECTION
     Dates: start: 20031120, end: 20040113
  3. LUCRIN INJECTION (LEUPROLIDE ACETATE) (INJECTION) [Suspect]
     Indication: UTERINE LEIOMYOMA
     Dosage: 3.75 MG (3.75 MG, 1 IN 1 M) INJECTION
     Dates: start: 20031120, end: 20040113

REACTIONS (1)
  - UTERINE LEIOMYOSARCOMA [None]
